FAERS Safety Report 5130400-6 (Version None)
Quarter: 2006Q4

REPORT INFORMATION
  Report Type: 
  Country: None (occurrence: None)
  Receive Date: 20061018
  Receipt Date: 20061018
  Transmission Date: 20070319
  Serious: Yes (Hospitalization)
  Sender: FDA-Public Use
  Company Number: None

PATIENT
  Age: 70 Year
  Sex: Male
  Weight: 83.4619 kg

DRUGS (10)
  1. NITROGLYCERIN [Suspect]
     Indication: CHEST PAIN
     Dosage: 0.4 MG PRN S1
     Dates: start: 20060901, end: 20061017
  2. FUROSEMIDE [Suspect]
     Indication: HYPERTENSION
     Dosage: 40 MG BID PO
     Route: 048
     Dates: start: 20060801, end: 20061008
  3. METHACARBAMOL [Concomitant]
  4. LISINOPRIL [Concomitant]
  5. PROMETHAZINE [Concomitant]
  6. METOPROLOL [Concomitant]
  7. ASPIRIN [Concomitant]
  8. PANTOPRAZOLE SODIUM [Concomitant]
  9. POTASSIUM CHLORIDE [Concomitant]
  10. SIMVASTATIN [Concomitant]

REACTIONS (8)
  - CHEST PAIN [None]
  - DIZZINESS [None]
  - DRUG ADMINISTRATION ERROR [None]
  - DRUG INTERACTION [None]
  - LOSS OF CONSCIOUSNESS [None]
  - POLLAKIURIA [None]
  - RESPIRATORY RATE INCREASED [None]
  - SYNCOPE [None]
